FAERS Safety Report 9000854 (Version 1)
Quarter: 2013Q1

REPORT INFORMATION
  Report Type: Spontaneous
  Country: US (occurrence: None)
  Receive Date: 20130103
  Receipt Date: 20130103
  Transmission Date: 20140127
  Serious: Yes (Hospitalization)
  Sender: FDA-Public Use
  Company Number: None

PATIENT
  Age: 69 Year
  Sex: Female
  Weight: 69 kg

DRUGS (1)
  1. LATUDA 40 MG SUNOVION [Suspect]
     Route: 048

REACTIONS (2)
  - Mental status changes [None]
  - Muscle rigidity [None]
